FAERS Safety Report 24882554 (Version 1)
Quarter: 2025Q1

REPORT INFORMATION
  Report Type: Spontaneous
  Country: US (occurrence: US)
  Receive Date: 20250124
  Receipt Date: 20250124
  Transmission Date: 20250409
  Serious: Yes (Other)
  Sender: pharmaAND
  Company Number: US-Pharmaand-2025000024

PATIENT
  Sex: Male

DRUGS (1)
  1. RUBRACA [Suspect]
     Active Substance: RUCAPARIB CAMSYLATE
     Indication: Prostate cancer
     Dosage: 600 MG BID
     Route: 048
     Dates: end: 20250109

REACTIONS (3)
  - Neoplasm malignant [Unknown]
  - Prostatic specific antigen increased [Unknown]
  - Drug ineffective [Unknown]
